FAERS Safety Report 16897241 (Version 5)
Quarter: 2022Q3

REPORT INFORMATION
  Report Type: Spontaneous
  Country: DK (occurrence: DK)
  Receive Date: 20191009
  Receipt Date: 20220912
  Transmission Date: 20221026
  Serious: Yes (Hospitalization)
  Sender: FDA-Public Use
  Company Number: DK-ROCHE-2430262

PATIENT
  Age: 57 Year
  Sex: Male

DRUGS (6)
  1. OCREVUS [Suspect]
     Active Substance: OCRELIZUMAB
     Indication: Relapsing multiple sclerosis
     Dosage: RATE OF 30 ML/HOUR FOR 30 MIN. INCREASED BY 30 ML/HOUR EVERY 30 MIN WITH A MAX RATE 180 ML/HOUR
     Route: 042
     Dates: start: 20190910, end: 20190923
  2. OCREVUS [Suspect]
     Active Substance: OCRELIZUMAB
     Indication: Multiple sclerosis
  3. QUESTRAN [Suspect]
     Active Substance: CHOLESTYRAMINE
     Indication: Product used for unknown indication
     Route: 048
     Dates: start: 20190827, end: 20190908
  4. MODAFINIL [Concomitant]
     Active Substance: MODAFINIL
     Indication: Narcolepsy
     Dosage: STYRE
     Route: 048
     Dates: start: 20120820
  5. FLUOXETINE [Concomitant]
     Active Substance: FLUOXETINE HYDROCHLORIDE
     Indication: Depression
     Route: 048
     Dates: start: 20120820
  6. ENALAPRIL [Concomitant]
     Active Substance: ENALAPRIL
     Indication: Hypertension
     Dosage: STYRKE 5MG
     Route: 048
     Dates: start: 20140821

REACTIONS (7)
  - Abdominal pain [Recovered/Resolved]
  - Hepatic enzyme increased [Recovered/Resolved]
  - Abdominal pain upper [Unknown]
  - Haematemesis [Recovered/Resolved]
  - Hepatitis toxic [Recovered/Resolved]
  - Alanine aminotransferase increased [Recovered/Resolved]
  - Liver disorder [Unknown]

NARRATIVE: CASE EVENT DATE: 20190901
